FAERS Safety Report 26197002 (Version 1)
Quarter: 2025Q4

REPORT INFORMATION
  Report Type: Spontaneous
  Country: US (occurrence: US)
  Receive Date: 20251224
  Receipt Date: 20251224
  Transmission Date: 20260118
  Serious: No
  Sender: TOLMAR
  Company Number: US-Tolmar-TLM-2025-09515

PATIENT

DRUGS (3)
  1. ELIGARD [Suspect]
     Active Substance: LEUPROLIDE ACETATE
     Indication: Prostate cancer
     Dosage: LOT: 15548CUS EXP: 11-2026?SYRINGE A: 15548AUS 11-2026?SYRINGE B: 15548BUS 11:2026?NDC: 6293575680?S
  2. ELIGARD [Suspect]
     Active Substance: LEUPROLIDE ACETATE
  3. DEVICE [Suspect]
     Active Substance: DEVICE
     Indication: Prostate cancer
     Dosage: LOT: 15548CUS EXP: 11-2026?SYRINGE A: 15548AUS 11-2026?SYRINGE B: 15548BUS 11:2026?NDC: 6293575680?S

REACTIONS (2)
  - Intercepted product preparation error [Unknown]
  - Device leakage [Unknown]
